FAERS Safety Report 4713860-1 (Version None)
Quarter: 2005Q3

REPORT INFORMATION
  Report Type: 
  Country: None (occurrence: None)
  Receive Date: 20050713
  Receipt Date: 20050623
  Transmission Date: 20060218
  Serious: No
  Sender: FDA-Public Use
  Company Number: USA0506101226

PATIENT
  Age: 51 Year
  Sex: Female

DRUGS (1)
  1. ZYPREXA [Suspect]
     Indication: NERVOUS SYSTEM DISORDER
     Dosage: 0.625 MG DAY
     Dates: start: 20050501

REACTIONS (4)
  - ABNORMAL BEHAVIOUR [None]
  - NIGHTMARE [None]
  - PARANOIA [None]
  - PLATELET COUNT INCREASED [None]
